FAERS Safety Report 26092955 (Version 1)
Quarter: 2025Q4

REPORT INFORMATION
  Report Type: Spontaneous
  Country: GB (occurrence: GB)
  Receive Date: 20251126
  Receipt Date: 20251126
  Transmission Date: 20260118
  Serious: Yes (Disabling, Other)
  Sender: IDORSIA PHARMACEUTICALS
  Company Number: None

PATIENT
  Age: 67 Year
  Sex: Female
  Weight: 69 kg

DRUGS (17)
  1. QUVIVIQ [Suspect]
     Active Substance: DARIDOREXANT
     Indication: Ill-defined disorder
     Dosage: 25 MG
     Route: 065
  2. Aymes complete [Concomitant]
     Indication: Ill-defined disorder
     Dosage: 14 SACHETS PER MONTH
     Dates: start: 20251028
  3. CODEINE PHOSPHATE [Concomitant]
     Active Substance: CODEINE PHOSPHATE
     Indication: Ill-defined disorder
     Dosage: 1 DOSAGE FORM, QID
     Dates: start: 20251009, end: 20251023
  4. AMITRIPTYLINE HYDROCHLORIDE [Concomitant]
     Active Substance: AMITRIPTYLINE HYDROCHLORIDE
     Indication: Ill-defined disorder
     Dosage: TAKE UP TO 5 DAILY TO HELP PAIN
     Dates: start: 20250508
  5. AMLODIPINE [Concomitant]
     Active Substance: AMLODIPINE BESYLATE
     Indication: Ill-defined disorder
     Dosage: ONE TO BE TAKEN EACH DAY
     Dates: start: 20250508
  6. ATORVASTATIN [Concomitant]
     Active Substance: ATORVASTATIN
     Indication: Ill-defined disorder
     Dosage: ONE TO BE TAKEN DAILY TO LOWER CHOLESTEROL
     Dates: start: 20250508
  7. BETAMETHASONE VALERATE [Concomitant]
     Active Substance: BETAMETHASONE VALERATE
     Indication: Ill-defined disorder
     Dosage: APPLY TWICE A DAY AS DIRECTED
     Dates: start: 20250508
  8. DAPAGLIFLOZIN [Concomitant]
     Active Substance: DAPAGLIFLOZIN
     Indication: Diabetes mellitus
     Dosage: TAKE ONE DAILY
     Dates: start: 20250508
  9. DIAZEPAM [Concomitant]
     Active Substance: DIAZEPAM
     Indication: Ill-defined disorder
     Dosage: ONE TABLET TO BE TAKEN ONLY WHEN NEEDED, UPTO 3...
     Dates: start: 20250508
  10. CARBOHYDRATES\FATTY ACIDS\MINERALS\PROTEIN\VITAMINS [Concomitant]
     Active Substance: CARBOHYDRATES\FATTY ACIDS\MINERALS\PROTEIN\VITAMINS
     Indication: Ill-defined disorder
     Dosage: ONE DAILY FOR 4 MONTHS APRIL-AUGUST 2025
     Dates: start: 20250508
  11. HYDROCORTISONE [Concomitant]
     Active Substance: HYDROCORTISONE
     Indication: Ill-defined disorder
     Dosage: UNK UNK, BID
     Dates: start: 20250508
  12. IBUPROFEN [Concomitant]
     Active Substance: IBUPROFEN
     Indication: Ill-defined disorder
     Dosage: APPLY UP TO THREE TIMES A DAY
     Dates: start: 20250508
  13. LANSOPRAZOLE [Concomitant]
     Active Substance: LANSOPRAZOLE
     Indication: Ill-defined disorder
     Dosage: ONE OR TWO TO BE TAKEN EACH MORNING
     Dates: start: 20250508
  14. LOPERAMIDE [Concomitant]
     Active Substance: LOPERAMIDE
     Indication: Ill-defined disorder
     Dosage: TWO TO BE TAKEN IMMEDIATELY THEN ONE TO BE TAKE...
     Dates: start: 20250508
  15. THIAMINE [Concomitant]
     Active Substance: THIAMINE
     Indication: Ill-defined disorder
     Dosage: UNK UNK, TID
     Dates: start: 20250508
  16. TRAZODONE [Concomitant]
     Active Substance: TRAZODONE HYDROCHLORIDE
     Indication: Ill-defined disorder
     Dosage: 50 MG
     Dates: start: 20250508
  17. ZOLPIDEM [Concomitant]
     Active Substance: ZOLPIDEM TARTRATE
     Indication: Ill-defined disorder
     Dosage: ONE TO BE TAKEN AT NIGHT
     Dates: start: 20250508, end: 20251112

REACTIONS (2)
  - Hypersomnia [Recovered/Resolved]
  - Suicidal ideation [Recovered/Resolved]
